FAERS Safety Report 9008029 (Version 4)
Quarter: 2013Q1

REPORT INFORMATION
  Report Type: Spontaneous
  Country: NZ (occurrence: NZ)
  Receive Date: 20130110
  Receipt Date: 20130313
  Transmission Date: 20140127
  Serious: Yes (Life-Threatening, Hospitalization, Other)
  Sender: FDA-Public Use
  Company Number: NZ-AMGEN-NZLSP2013000698

PATIENT
  Age: 49 Year
  Sex: Female
  Weight: 70 kg

DRUGS (13)
  1. FILGRASTIM [Suspect]
     Indication: NEUTROPENIA
     Dosage: UNK, QD
     Route: 065
     Dates: start: 20120903
  2. FILGRASTIM [Suspect]
     Dosage: UNK, QD
     Route: 065
     Dates: start: 201212
  3. FILGRASTIM [Suspect]
     Dosage: UNK, QD
     Route: 065
     Dates: start: 201301
  4. MABTHERA [Suspect]
     Indication: SPLENIC MARGINAL ZONE LYMPHOMA
     Dosage: UNK UNK, Q3WK
     Route: 042
     Dates: start: 20101029, end: 20110211
  5. CYCLOPHOSPHAMIDE [Suspect]
     Indication: SPLENIC MARGINAL ZONE LYMPHOMA
     Dosage: UNK
     Route: 065
     Dates: start: 20101029, end: 20110211
  6. DOXORUBICIN [Suspect]
     Indication: SPLENIC MARGINAL ZONE LYMPHOMA
     Dosage: UNK
     Route: 065
     Dates: start: 20101029, end: 20110211
  7. VINCRISTINE [Suspect]
     Indication: SPLENIC MARGINAL ZONE LYMPHOMA
     Dosage: UNK
     Route: 065
     Dates: start: 20101029, end: 20110211
  8. PREDNISONE [Suspect]
     Indication: SPLENIC MARGINAL ZONE LYMPHOMA
     Dosage: UNK
     Route: 065
     Dates: start: 20101029, end: 20110211
  9. FLUCONAZOLE [Concomitant]
     Indication: VULVOVAGINAL CANDIDIASIS
     Dosage: 50 MG, QD
     Route: 048
     Dates: start: 201207, end: 201212
  10. CEPHALEXIN                         /00145501/ [Concomitant]
     Dosage: UNK
  11. SALBUTAMOL                         /00139502/ [Concomitant]
     Dosage: 1 IN1 AS REQUIRED
  12. PARACETAMOL [Concomitant]
     Indication: PAIN
     Dosage: 1 G, 1 IN 1 AS REQUIRED
  13. PENICILLIN                         /00000901/ [Concomitant]
     Dosage: UNK

REACTIONS (5)
  - Sepsis [Unknown]
  - Pneumonia [Unknown]
  - Neutropenia [Recovered/Resolved]
  - Infection [Recovered/Resolved]
  - Drug ineffective [Unknown]
